FAERS Safety Report 7133175-4 (Version None)
Quarter: 2010Q4

REPORT INFORMATION
  Report Type: 
  Country: None (occurrence: None)
  Receive Date: 20101117
  Receipt Date: 20101109
  Transmission Date: 20110411
  Serious: Yes (Hospitalization, Other)
  Sender: FDA-Public Use
  Company Number: 2010EN000302

PATIENT
  Age: 23 Year
  Sex: Female
  Weight: 103.3 kg

DRUGS (7)
  1. ONCASPAR [Suspect]
     Indication: ACUTE LYMPHOCYTIC LEUKAEMIA
     Dosage: 5650 IU;X1;IV ; 5550 IU;X1;IV
     Route: 042
     Dates: start: 20100816, end: 20100816
  2. ONCASPAR [Suspect]
     Indication: ACUTE LYMPHOCYTIC LEUKAEMIA
     Dosage: 5650 IU;X1;IV ; 5550 IU;X1;IV
     Route: 042
     Dates: start: 20101004, end: 20101004
  3. CYCLOPHOSPHAMIDE [Concomitant]
  4. CYTARABINE [Concomitant]
  5. MERCAPTOPURINE [Concomitant]
  6. METHOTREXATE [Concomitant]
  7. VINCRISTINE [Concomitant]

REACTIONS (9)
  - BACK PAIN [None]
  - DIZZINESS [None]
  - HEADACHE [None]
  - HYPERBILIRUBINAEMIA [None]
  - HYPERCHOLESTEROLAEMIA [None]
  - HYPERTRIGLYCERIDAEMIA [None]
  - NAUSEA [None]
  - PYREXIA [None]
  - VOMITING [None]
